FAERS Safety Report 5457345-6 (Version None)
Quarter: 2007Q3

REPORT INFORMATION
  Report Type: 
  Country: None (occurrence: None)
  Receive Date: 20070918
  Receipt Date: 20070213
  Transmission Date: 20080115
  Serious: No
  Sender: FDA-Public Use
  Company Number: US-ASTRAZENECA-2007UW02892

PATIENT
  Age: 48 Year
  Sex: Female
  Weight: 44 kg

DRUGS (2)
  1. SEROQUEL [Suspect]
     Indication: BIPOLAR DISORDER
     Route: 048
     Dates: start: 20020101
  2. KLONOPIN [Concomitant]

REACTIONS (2)
  - HEADACHE [None]
  - MICTURITION URGENCY [None]
